FAERS Safety Report 8170792-7 (Version None)
Quarter: 2012Q1

REPORT INFORMATION
  Report Type: 
  Country: None (occurrence: None)
  Receive Date: 20120104
  Receipt Date: 20111208
  Transmission Date: 20120608
  Serious: No
  Sender: FDA-Public Use
  Company Number: 2011HGS-002943

PATIENT
  Age: 38 Year
  Sex: Female
  Weight: 61.2356 kg

DRUGS (13)
  1. FOSAMAX [Concomitant]
  2. ZOFRAN (ONDANSETRON HYDROCHLORIDE) (ONDANSETRON HYDROCHLORIDE) [Concomitant]
  3. PROAIR (SALBUTAMOL SULFATE) (SALBUTAMOL SULFATE) [Concomitant]
  4. DIFLUCONAZOLE (FLUCONAZOLE) (FLUCONAZOLE) [Concomitant]
  5. FENTANYL [Concomitant]
  6. BENLYSTA [Suspect]
     Indication: SYSTEMIC LUPUS ERYTHEMATOSUS
     Dosage: 1 IN 28 D, INTRAVENOUS DRIP
     Route: 041
     Dates: start: 20111201
  7. VOLTAREN (DICLOFENAC POTASSIUM) (DICLOFENAC POTASSIUM) [Concomitant]
  8. TOPAMAX (TOPIRAMATE) (TOPIRAMATE) [Concomitant]
  9. PLAQUENIL (HYDROXYCHLOROQUINE SULFATE) (HYDROXYCHLOROQUINE SULFATE) [Concomitant]
  10. AMBIEN [Concomitant]
  11. TORADOL (KETOROLAC TROMETHAMINE) (KETOROLAC TROMETHAMINE) [Concomitant]
  12. IMITREX (SUMATRIPTAN SUCCINATE) (SUMATRIPTAN SUCCINATE) [Concomitant]
  13. ZANAFLEX (TIZANIDINE HYDORCHLORIDE) (TIZANIDINE HYDROCHLORIDE) [Concomitant]

REACTIONS (2)
  - FATIGUE [None]
  - RASH PRURITIC [None]
